FAERS Safety Report 25705103 (Version 1)
Quarter: 2025Q3

REPORT INFORMATION
  Report Type: Spontaneous
  Country: US (occurrence: None)
  Receive Date: 20250819
  Receipt Date: 20250819
  Transmission Date: 20251021
  Serious: Yes (Other)
  Sender: FDA-CTU
  Company Number: None

PATIENT
  Age: 45 Year
  Sex: Female

DRUGS (7)
  1. AMITRIPTYLINE [Suspect]
     Active Substance: AMITRIPTYLINE
     Indication: Nerve injury
     Dosage: OTHER QUANTITY : 90 TABLET(S);?FREQUENCY : AT BEDTIME;?
     Route: 048
     Dates: start: 20250501, end: 20250809
  2. GABAPENTIN [Suspect]
     Active Substance: GABAPENTIN
  3. TRAMADOL [Concomitant]
     Active Substance: TRAMADOL
  4. TYLENOL [Concomitant]
     Active Substance: ACETAMINOPHEN
  5. AMITRIPTYLINE [Concomitant]
     Active Substance: AMITRIPTYLINE
  6. VITAMIN B COMPLEX [Concomitant]
     Active Substance: CYANOCOBALAMIN\DEXPANTHENOL\NIACINAMIDE\PYRIDOXINE HYDROCHLORIDE\RIBOFLAVIN 5^-PHOSPHATE SODIUM\THIA
  7. TYLENOL [Concomitant]
     Active Substance: ACETAMINOPHEN

REACTIONS (13)
  - Flat affect [None]
  - Hypersomnia [None]
  - Headache [None]
  - Vision blurred [None]
  - Temperature intolerance [None]
  - Dizziness [None]
  - Therapy interrupted [None]
  - Withdrawal syndrome [None]
  - Tremor [None]
  - Irritability [None]
  - Emotional disorder [None]
  - Nausea [None]
  - Euphoric mood [None]

NARRATIVE: CASE EVENT DATE: 20250813
